FAERS Safety Report 16156859 (Version 3)
Quarter: 2019Q4

REPORT INFORMATION
  Report Type: Report from Study
  Country: DE (occurrence: DE)
  Receive Date: 20190404
  Receipt Date: 20191128
  Transmission Date: 20200122
  Serious: Yes (Death, Hospitalization)
  Sender: FDA-Public Use
  Company Number: PHHY2018DE165282

PATIENT
  Age: 82 Year
  Sex: Male
  Weight: 63 kg

DRUGS (7)
  1. ALLOPURINOL. [Concomitant]
     Active Substance: ALLOPURINOL
     Indication: PRODUCT USED FOR UNKNOWN INDICATION
     Dosage: 300 MG, QD
     Route: 048
     Dates: end: 20180404
  2. OPDIVO [Concomitant]
     Active Substance: NIVOLUMAB
     Indication: MALIGNANT MELANOMA
     Dosage: 65 MG, Q3W
     Route: 042
     Dates: start: 20180228
  3. TAFINLAR [Suspect]
     Active Substance: DABRAFENIB MESYLATE
     Indication: METASTATIC MALIGNANT MELANOMA
     Dosage: 300 MG, BID
     Route: 048
     Dates: start: 20170509, end: 20180220
  4. ACETYLSALICYLIC ACID [Concomitant]
     Active Substance: ASPIRIN
     Indication: PRODUCT USED FOR UNKNOWN INDICATION
     Dosage: 100 MG, QD
     Route: 048
  5. XARELTO [Concomitant]
     Active Substance: RIVAROXABAN
     Indication: PRODUCT USED FOR UNKNOWN INDICATION
     Route: 065
  6. MEKINIST [Suspect]
     Active Substance: TRAMETINIB DIMETHYL SULFOXIDE
     Indication: METASTATIC MALIGNANT MELANOMA
     Dosage: 2 MG, QD
     Route: 048
     Dates: start: 20170509, end: 20180220
  7. YERVOY [Concomitant]
     Active Substance: IPILIMUMAB
     Indication: MALIGNANT MELANOMA
     Dosage: 201 MG, Q3W
     Route: 042
     Dates: start: 20180228

REACTIONS (11)
  - Pneumonia [Fatal]
  - Behaviour disorder [Fatal]
  - Pyrexia [Recovered/Resolved]
  - Infection [Fatal]
  - Metastatic malignant melanoma [Fatal]
  - Pyrexia [Fatal]
  - General physical health deterioration [Fatal]
  - Metastases to central nervous system [Recovered/Resolved]
  - Diarrhoea [Fatal]
  - Malignant neoplasm progression [Fatal]
  - Haemorrhage [Recovered/Resolved]

NARRATIVE: CASE EVENT DATE: 20170513
